FAERS Safety Report 22191391 (Version 1)
Quarter: 2023Q2

REPORT INFORMATION
  Report Type: Spontaneous
  Country: CH (occurrence: None)
  Receive Date: 20230410
  Receipt Date: 20230410
  Transmission Date: 20230721
  Serious: Yes (Other)
  Sender: FDA-Public Use
  Company Number: 2023A082726

PATIENT
  Age: 58 Year
  Sex: Male

DRUGS (30)
  1. NEXIUM [Suspect]
     Active Substance: ESOMEPRAZOLE MAGNESIUM
     Indication: Product used for unknown indication
     Dosage: 40 MILLIGRAM, 1/DAY
     Route: 048
     Dates: start: 20230312
  2. NEXIUM [Suspect]
     Active Substance: ESOMEPRAZOLE MAGNESIUM
     Indication: Product used for unknown indication
     Dosage: 40 MILLIGRAM, 1/DAY
     Route: 048
     Dates: start: 20230308, end: 20230311
  3. QUETIAPINE [Suspect]
     Active Substance: QUETIAPINE
     Indication: Product used for unknown indication
     Dosage: 25 MILLIGRAM, EVERY 12 HRS
     Route: 048
     Dates: start: 20230314
  4. SOLU-CORTEF [Suspect]
     Active Substance: HYDROCORTISONE SODIUM SUCCINATE
     Indication: Product used for unknown indication
     Dosage: 100 MILLIGRAM, 1/DAY
     Route: 042
     Dates: start: 20230307, end: 20230307
  5. SOLU-CORTEF [Suspect]
     Active Substance: HYDROCORTISONE SODIUM SUCCINATE
     Indication: Product used for unknown indication
     Dosage: 100 MILLIGRAM, EVERY 8 HRS
     Route: 042
     Dates: start: 20230308, end: 20230309
  6. PIPERACILLIN SODIUM\TAZOBACTAM SODIUM [Suspect]
     Active Substance: PIPERACILLIN SODIUM\TAZOBACTAM SODIUM
     Indication: Pneumonia
     Dosage: 4.5 GRAM, 1/DAY
     Route: 042
     Dates: start: 20230307, end: 20230307
  7. PIPERACILLIN SODIUM\TAZOBACTAM SODIUM [Suspect]
     Active Substance: PIPERACILLIN SODIUM\TAZOBACTAM SODIUM
     Indication: Pneumonia
     Dosage: 4.5 GRAM, EVERY 8 HRS
     Route: 042
     Dates: start: 20230308, end: 20230308
  8. PIPERACILLIN SODIUM\TAZOBACTAM SODIUM [Suspect]
     Active Substance: PIPERACILLIN SODIUM\TAZOBACTAM SODIUM
     Indication: Pneumonia
     Dosage: 4.5 GRAM, EVERY 8 HRS
     Route: 042
     Dates: start: 20230311, end: 20230312
  9. VANCOMYCIN [Suspect]
     Active Substance: VANCOMYCIN
     Indication: Pneumonia
     Dosage: 1 GRAM, 1/DAY
     Route: 042
     Dates: start: 20230307, end: 20230307
  10. VANCOMYCIN [Suspect]
     Active Substance: VANCOMYCIN
     Indication: Pneumonia
     Dosage: 2 GRAM, 1/DAY
     Route: 042
     Dates: start: 20230308, end: 20230308
  11. CEFTRIAXONE [Suspect]
     Active Substance: CEFTRIAXONE
     Indication: Pneumonia
     Dosage: 4 GRAM, 1/DAY
     Route: 042
     Dates: start: 20230309, end: 20230309
  12. CEFTRIAXONE [Suspect]
     Active Substance: CEFTRIAXONE
     Indication: Pneumonia
     Dosage: 2 GRAM, 1/DAY
     Route: 042
     Dates: start: 20230310, end: 20230310
  13. AMOXICILLIN\CLAVULANATE POTASSIUM [Suspect]
     Active Substance: AMOXICILLIN\CLAVULANATE POTASSIUM
     Indication: Pneumonia
     Dosage: 2.2 GRAM, EVERY 8 HRS
     Route: 048
     Dates: start: 20230310, end: 20230310
  14. AMOXICILLIN\CLAVULANATE POTASSIUM [Suspect]
     Active Substance: AMOXICILLIN\CLAVULANATE POTASSIUM
     Indication: Pneumonia
     Dosage: 1.2 GRAM, 1/DAY
     Route: 048
     Dates: start: 20230311, end: 20230311
  15. AMOXICILLIN\CLAVULANATE POTASSIUM [Suspect]
     Active Substance: AMOXICILLIN\CLAVULANATE POTASSIUM
     Indication: Pneumonia
     Dosage: 1.2 GRAM, EVERY 6 HRS
     Route: 048
     Dates: start: 20230313, end: 20230315
  16. AMOXICILLIN\CLAVULANATE POTASSIUM [Suspect]
     Active Substance: AMOXICILLIN\CLAVULANATE POTASSIUM
     Indication: Pneumonia
     Dosage: 1 GRAM, EVERY 8 HRS
     Route: 048
     Dates: start: 20230316
  17. LEVOFLOXACIN [Suspect]
     Active Substance: LEVOFLOXACIN
     Indication: Pneumonia
     Dosage: 500 MILLIGRAM, 1/DAY
     Route: 042
     Dates: start: 20230308, end: 20230308
  18. ENALAPRIL MALEATE [Suspect]
     Active Substance: ENALAPRIL MALEATE
     Indication: Product used for unknown indication
     Dosage: 5 MILLIGRAM, EVERY 12 HRS
     Route: 048
     Dates: start: 20230311, end: 20230311
  19. ENALAPRIL MALEATE [Suspect]
     Active Substance: ENALAPRIL MALEATE
     Indication: Product used for unknown indication
     Dosage: 10 MILLIGRAM, EVERY 12 HRS
     Route: 048
     Dates: start: 20230312, end: 20230315
  20. ENALAPRIL [Suspect]
     Active Substance: ENALAPRIL
     Indication: Product used for unknown indication
     Dosage: 5 MILLIGRAM, EVERY 12 HRS
     Route: 048
     Dates: start: 20230316
  21. AMLODIPINE [Suspect]
     Active Substance: AMLODIPINE BESYLATE
     Indication: Product used for unknown indication
     Dosage: 10 MILLIGRAM, 1/DAY
     Route: 048
     Dates: start: 20230315
  22. ACETAMINOPHEN [Suspect]
     Active Substance: ACETAMINOPHEN
     Indication: Pain
     Dosage: 1 GRAM, EVERY 12 HRS
     Route: 048
     Dates: end: 20230306
  23. DAFALGAN [Suspect]
     Active Substance: ACETAMINOPHEN
     Indication: Product used for unknown indication
     Dosage: 500 MILLIGRAM, EVERY 12 HRS
     Route: 048
     Dates: start: 20230311, end: 20230312
  24. DAFALGAN [Suspect]
     Active Substance: ACETAMINOPHEN
     Indication: Product used for unknown indication
     Dosage: 1000 MILLIGRAM, EVERY 8 HRS
     Route: 048
     Dates: start: 20230313, end: 20230315
  25. DAFALGAN [Suspect]
     Active Substance: ACETAMINOPHEN
     Indication: Product used for unknown indication
     Dosage: 500 MILLIGRAM, 4/DAY
     Route: 048
     Dates: start: 20230316
  26. CILASTATIN SODIUM\IMIPENEM [Concomitant]
     Active Substance: CILASTATIN SODIUM\IMIPENEM
     Dosage: 3 GRAM, 1/DAY
     Route: 042
     Dates: start: 20230312, end: 20230313
  27. AMIKIN [Concomitant]
     Active Substance: AMIKACIN SULFATE
     Dosage: 1500 MILLIGRAM, 1/DAY
     Route: 042
     Dates: start: 20230308, end: 20230308
  28. PROPOFOL [Concomitant]
     Active Substance: PROPOFOL
     Dosage: UNK
     Route: 042
     Dates: start: 20230307, end: 20230311
  29. INSULIN NOS [Concomitant]
     Active Substance: INSULIN NOS
     Dosage: UNK
     Dates: start: 20230312, end: 20230315
  30. IBUPROFEN [Concomitant]
     Active Substance: IBUPROFEN
     Dosage: UNK
     Dates: end: 20230306

REACTIONS (1)
  - Mixed liver injury [Not Recovered/Not Resolved]
